FAERS Safety Report 21000476 (Version 1)
Quarter: 2022Q2

REPORT INFORMATION
  Report Type: Other
  Country: GB (occurrence: GB)
  Receive Date: 20220623
  Receipt Date: 20220623
  Transmission Date: 20220721
  Serious: Yes (Other)
  Sender: FDA-Public Use
  Company Number: GB-MACLEODS PHARMA UK LTD-MAC2022036178

PATIENT

DRUGS (2)
  1. TAMSULOSIN [Suspect]
     Active Substance: TAMSULOSIN
     Indication: Prostatomegaly
     Dosage: 400 MICROGRAM (TABLET)
     Route: 002
     Dates: start: 20220601, end: 20220605
  2. LOSARTAN [Concomitant]
     Active Substance: LOSARTAN
     Indication: Blood pressure measurement
     Dosage: UNK
     Route: 065

REACTIONS (11)
  - Lethargy [Unknown]
  - Syncope [Recovering/Resolving]
  - Nausea [Unknown]
  - Diarrhoea [Unknown]
  - Diarrhoea [Recovering/Resolving]
  - Skin disorder [Unknown]
  - Hyperhidrosis [Unknown]
  - Decreased appetite [Unknown]
  - Pain [Unknown]
  - Blood pressure decreased [Unknown]
  - Headache [Unknown]

NARRATIVE: CASE EVENT DATE: 20220603
